FAERS Safety Report 9231913 (Version 2)
Quarter: 2013Q2

REPORT INFORMATION
  Report Type: Spontaneous
  Country: FR (occurrence: FR)
  Receive Date: 20130415
  Receipt Date: 20130503
  Transmission Date: 20140414
  Serious: Yes (Other)
  Sender: FDA-Public Use
  Company Number: FR-ASTRAZENECA-2013SE23520

PATIENT
  Sex: Female

DRUGS (2)
  1. XEROQUEL [Suspect]
     Route: 048
  2. ANAFRANIL [Interacting]
     Route: 065

REACTIONS (3)
  - Drug interaction [Unknown]
  - Anxiety [Recovered/Resolved]
  - Tetany [Recovered/Resolved]
